FAERS Safety Report 10619496 (Version 1)
Quarter: 2014Q4

REPORT INFORMATION
  Report Type: Spontaneous
  Country: JP (occurrence: JP)
  Receive Date: 20141202
  Receipt Date: 20141202
  Transmission Date: 20150529
  Serious: Yes (Death, Hospitalization)
  Sender: FDA-Public Use
  Company Number: PHHY2014JP153930

PATIENT
  Age: 72 Year
  Sex: Male

DRUGS (3)
  1. HYDROCORTISONE. [Concomitant]
     Active Substance: HYDROCORTISONE
     Indication: HYPOPITUITARISM
     Dosage: 3.3 MG, QD
     Route: 065
  2. PACLITAXEL. [Suspect]
     Active Substance: PACLITAXEL
     Indication: LUNG SQUAMOUS CELL CARCINOMA STAGE III
     Dosage: 200 MG/M2, UNK
     Route: 065
  3. CARBOPLATIN. [Suspect]
     Active Substance: CARBOPLATIN
     Indication: LUNG SQUAMOUS CELL CARCINOMA STAGE III
     Route: 065

REACTIONS (14)
  - Colitis ischaemic [Unknown]
  - Hypotension [Unknown]
  - Pancytopenia [Unknown]
  - Intestinal ulcer [Unknown]
  - Gastritis erosive [Unknown]
  - Haemorrhage [Unknown]
  - Febrile neutropenia [Unknown]
  - Abdominal distension [Unknown]
  - Gastrointestinal necrosis [Unknown]
  - Septic shock [Fatal]
  - Haemodynamic instability [Unknown]
  - Gastrointestinal tract mucosal discolouration [Unknown]
  - Candida infection [Fatal]
  - Neutropenia [Unknown]
